FAERS Safety Report 7206223-0 (Version None)
Quarter: 2010Q4

REPORT INFORMATION
  Report Type: 
  Country: None (occurrence: None)
  Receive Date: 20101217
  Receipt Date: 20101202
  Transmission Date: 20110411
  Serious: Yes (Other)
  Sender: FDA-Public Use
  Company Number: DSU-2010-06744

PATIENT
  Age: 60 Year
  Sex: Female
  Weight: 93.5 kg

DRUGS (3)
  1. OLMETEC (OLMESARTAN MEDOXOMIL) (40 MILLIGRAM, TABLET) (OLMESARTAN MEDO [Suspect]
     Indication: HYPERTENSION
     Dosage: 40 MG (40 MG, QD), PER ORAL
     Route: 048
     Dates: start: 20101201
  2. MODURETIC (HYDROCHLOROTHIAZIDE, AMILORIDE HYDROCHLORIDE) (50 MILLIGRAM [Concomitant]
  3. TIBOLONE (TIBOLONE) (TIBOLONE) [Concomitant]

REACTIONS (2)
  - NEPHROLITHIASIS [None]
  - RENAL DISORDER [None]
